FAERS Safety Report 4518832-8 (Version None)
Quarter: 2004Q4

REPORT INFORMATION
  Report Type: 
  Country: None (occurrence: None)
  Receive Date: 20041206
  Receipt Date: 20041124
  Transmission Date: 20050328
  Serious: Yes (Other)
  Sender: FDA-Public Use
  Company Number: US-JNJFOC-20041106400

PATIENT
  Age: 6 Decade
  Sex: Female

DRUGS (1)
  1. REMICADE [Suspect]
     Indication: CROHN'S DISEASE
     Dosage: PATIENT HAS BEEN ON INFLIXIMAB FOR 6-8 MONTHS.
     Route: 042

REACTIONS (2)
  - AORTIC VALVE REPLACEMENT [None]
  - ARTERIAL OCCLUSIVE DISEASE [None]
